FAERS Safety Report 7834300-X (Version None)
Quarter: 2011Q4

REPORT INFORMATION
  Report Type: 
  Country: None (occurrence: None)
  Receive Date: 20111024
  Receipt Date: 20111019
  Transmission Date: 20120403
  Serious: Yes (Death, Other)
  Sender: FDA-Public Use
  Company Number: FR-CEPHALON-2010005977

PATIENT
  Age: 89 Year
  Sex: Female

DRUGS (2)
  1. PREVISCAN [Concomitant]
  2. ACTIQ [Suspect]
     Indication: THERAPEUTIC SKIN CARE TOPICAL
     Route: 002
     Dates: start: 20100501, end: 20100501

REACTIONS (4)
  - SOMNOLENCE [None]
  - BRADYPNOEA [None]
  - DRUG PRESCRIBING ERROR [None]
  - DECUBITUS ULCER [None]
